FAERS Safety Report 7720707-8 (Version None)
Quarter: 2011Q3

REPORT INFORMATION
  Report Type: 
  Country: None (occurrence: None)
  Receive Date: 20110831
  Receipt Date: 20110825
  Transmission Date: 20111222
  Serious: Yes (Other)
  Sender: FDA-Public Use
  Company Number: PHEH2005US09920

PATIENT
  Sex: Female
  Weight: 56.2 kg

DRUGS (25)
  1. VINORELBINE [Concomitant]
     Dates: start: 20040720, end: 20040929
  2. TAXOTERE [Concomitant]
     Dosage: 120MG QMO
     Dates: start: 20041022, end: 20050406
  3. FAMVIR [Concomitant]
     Dosage: 500 MG, BID
     Route: 048
  4. TYLENOL-500 [Concomitant]
  5. AMOXICILLIN [Concomitant]
     Dosage: 500 MG, TID
  6. GEMZAR [Concomitant]
     Dosage: 1.4GM QWK
     Dates: start: 20040720, end: 20040929
  7. PERIDEX [Concomitant]
  8. XELODA [Concomitant]
     Indication: BREAST CANCER METASTATIC
     Dosage: 2500 MG/M2/D FOR 14 DAYS W/1WK REST
  9. OXYCODONE HCL [Concomitant]
  10. DIOVAN [Concomitant]
     Dosage: 80 MG, QD
  11. HYDROCODONE BITARTRATE [Concomitant]
  12. ZOMETA [Suspect]
     Indication: METASTASES TO BONE
     Dosage: 4 MG, UNK
     Route: 042
     Dates: start: 20040615, end: 20060101
  13. AMOXICILLIN [Concomitant]
     Indication: TRISMUS
     Dosage: 875 MG, BID
     Dates: start: 20050609, end: 20050624
  14. AMOXICILLIN [Concomitant]
     Dosage: 500 MG, TID
  15. CALCIUM CARBONATE [Concomitant]
     Dosage: 600 MG, QD
  16. DOCUSATE SODIUM [Concomitant]
     Dosage: 100 MG, BID
  17. LEVAQUIN [Concomitant]
  18. BUSPAR [Concomitant]
     Dosage: 4 MG, BID
  19. AMOXICILLIN [Concomitant]
     Dosage: 500 MG, TID
  20. NEUPOGEN [Concomitant]
  21. WELLBUTRIN [Concomitant]
  22. SENOKOT                                 /UNK/ [Concomitant]
     Dosage: 100 MG, BID
  23. MULTI-VITAMINS [Concomitant]
  24. CAPECITABINE [Concomitant]
  25. ATIVAN [Concomitant]
     Dosage: 1 MG, BID

REACTIONS (54)
  - OSTEOMYELITIS [None]
  - PURULENCE [None]
  - GINGIVAL ERYTHEMA [None]
  - LYMPH NODE PAIN [None]
  - DECREASED INTEREST [None]
  - HAEMANGIOMA [None]
  - DYSPNOEA [None]
  - SPINAL DISORDER [None]
  - PLEURAL DISORDER [None]
  - MUSCLE SPASMS [None]
  - SPLENOMEGALY [None]
  - OSTEONECROSIS OF JAW [None]
  - PAIN [None]
  - LYMPHADENOPATHY [None]
  - INTERVERTEBRAL DISC DEGENERATION [None]
  - NEUTROPENIA [None]
  - CELLULITIS [None]
  - SOFT TISSUE INFECTION [None]
  - SWELLING [None]
  - WEIGHT DECREASED [None]
  - PLEURAL EFFUSION [None]
  - METASTASES TO BONE [None]
  - OSTEOARTHRITIS [None]
  - DIARRHOEA [None]
  - TOOTHACHE [None]
  - TRISMUS [None]
  - JOINT SWELLING [None]
  - LUMBAR SPINAL STENOSIS [None]
  - HEPATIC CIRRHOSIS [None]
  - PRIMARY SEQUESTRUM [None]
  - PARAESTHESIA [None]
  - DEFORMITY [None]
  - ANXIETY [None]
  - INTERVERTEBRAL DISC PROTRUSION [None]
  - PNEUMONITIS [None]
  - PAIN IN JAW [None]
  - GINGIVAL INFECTION [None]
  - OSTEOLYSIS [None]
  - HEPATIC CYST [None]
  - PARAESTHESIA ORAL [None]
  - MUSCULOSKELETAL PAIN [None]
  - METASTASES TO LYMPH NODES [None]
  - RENAL CYST [None]
  - HYPOPHAGIA [None]
  - LIFE EXPECTANCY SHORTENED [None]
  - ATELECTASIS [None]
  - SPINAL OSTEOARTHRITIS [None]
  - SWELLING FACE [None]
  - BONE DISORDER [None]
  - IMPAIRED HEALING [None]
  - EMOTIONAL DISTRESS [None]
  - GENERAL PHYSICAL HEALTH DETERIORATION [None]
  - OSTEOSCLEROSIS [None]
  - METASTASES TO SPINE [None]
